FAERS Safety Report 7123716-5 (Version None)
Quarter: 2010Q4

REPORT INFORMATION
  Report Type: 
  Country: None (occurrence: None)
  Receive Date: 20101125
  Receipt Date: 20101112
  Transmission Date: 20110411
  Serious: Yes (Other)
  Sender: FDA-Public Use
  Company Number: PHEH2007US15448

PATIENT
  Sex: Female
  Weight: 97.052 kg

DRUGS (30)
  1. ZOMETA [Suspect]
     Indication: BONE NEOPLASM MALIGNANT
     Dosage: 4 MG, QMO
     Route: 042
     Dates: start: 20040812, end: 20070101
  2. DEXAMETHASONE [Concomitant]
     Dosage: UNK
  3. PERIDEX [Concomitant]
  4. CHEMOTHERAPEUTICS NOS [Concomitant]
  5. WELLBUTRIN SR [Concomitant]
     Dosage: 150 MG, 1 TAB 2 TIMES DAILY
  6. CYMBALTA [Concomitant]
     Dosage: 60 MG
  7. MORPHINE [Concomitant]
     Dosage: 15 MG
  8. PERCOCET [Concomitant]
     Dosage: 5/325
  9. VALIUM [Concomitant]
     Dosage: 5 MG
  10. HYDROCHLOROTHIAZIDE [Concomitant]
     Dosage: 15.5 MG
  11. ATENOLOL [Concomitant]
     Dosage: 25, 1 PER DAY
  12. MOBIC [Concomitant]
     Dosage: 7.5 MG, 1 TWICE DAILY
  13. DOXYCYCLINE [Concomitant]
     Dosage: 100 MG FOR 10 DAYS
  14. PRILOSEC [Concomitant]
     Dosage: UNK
  15. TIZANIDINE HCL [Concomitant]
     Dosage: 4 MG AS NEEDED
  16. NEXIUM [Concomitant]
     Dosage: UNK
  17. NEURONTIN [Concomitant]
     Dosage: UNK
  18. ZANAFLEX [Concomitant]
  19. DECADRON [Concomitant]
  20. VELCADE [Concomitant]
  21. TORADOL [Concomitant]
  22. DILAUDID [Concomitant]
  23. STEROIDS NOS [Concomitant]
  24. ROCEPHIN [Concomitant]
  25. ALLOPURINOL [Concomitant]
     Indication: PROPHYLAXIS
  26. PHENERGAN ^AVENTIS PHARMA^ [Concomitant]
  27. ZOFRAN [Concomitant]
  28. MULTI-VITAMINS [Concomitant]
  29. ZINC [Concomitant]
  30. LISINOPRIL [Concomitant]

REACTIONS (35)
  - ABDOMINAL PAIN [None]
  - ABSCESS DRAINAGE [None]
  - ANHEDONIA [None]
  - ANXIETY [None]
  - BACK INJURY [None]
  - BACK PAIN [None]
  - BONE DISORDER [None]
  - BONE PAIN [None]
  - CHOLECYSTECTOMY [None]
  - COMPRESSION FRACTURE [None]
  - DENTAL CARIES [None]
  - DIVERTICULUM [None]
  - DIVERTICULUM INTESTINAL [None]
  - DYSPNOEA [None]
  - FLANK PAIN [None]
  - GASTROOESOPHAGEAL REFLUX DISEASE [None]
  - IMPAIRED GASTRIC EMPTYING [None]
  - IMPAIRED HEALING [None]
  - INJURY [None]
  - INTERVERTEBRAL DISC PROTRUSION [None]
  - IRRITABLE BOWEL SYNDROME [None]
  - JOINT SWELLING [None]
  - MUSCULOSKELETAL CHEST PAIN [None]
  - OSTEONECROSIS OF JAW [None]
  - PAIN [None]
  - PAIN IN EXTREMITY [None]
  - POLLAKIURIA [None]
  - RECTAL HAEMORRHAGE [None]
  - RENAL DISORDER [None]
  - ROAD TRAFFIC ACCIDENT [None]
  - TOOTH DISORDER [None]
  - TOOTH EXTRACTION [None]
  - TREATMENT NONCOMPLIANCE [None]
  - VASCULAR CALCIFICATION [None]
  - VERTEBROPLASTY [None]
